FAERS Safety Report 8967516 (Version 1)
Quarter: 2012Q4

REPORT INFORMATION
  Report Type: 
  Country: US (occurrence: US)
  Receive Date: 20121217
  Receipt Date: 20121217
  Transmission Date: 20130627
  Serious: No
  Sender: FDA-Public Use
  Company Number: US-BIOGENIDEC-2012BI059476

PATIENT
  Sex: Male

DRUGS (1)
  1. TYSABRI [Suspect]
     Indication: MULTIPLE SCLEROSIS
     Route: 042
     Dates: start: 20120215

REACTIONS (21)
  - Antisocial behaviour [Unknown]
  - Gait disturbance [Unknown]
  - Feeling abnormal [Unknown]
  - General symptom [Unknown]
  - Balance disorder [Unknown]
  - Tremor [Unknown]
  - Mental impairment [Unknown]
  - Feeling of despair [Unknown]
  - Mobility decreased [Unknown]
  - Muscle atrophy [Unknown]
  - Aphasia [Unknown]
  - Loss of consciousness [Unknown]
  - Depressed mood [Unknown]
  - Dysuria [Unknown]
  - Inner ear disorder [Unknown]
  - Exercise tolerance decreased [Unknown]
  - Drug ineffective [Unknown]
  - Malaise [Unknown]
  - Dizziness [Unknown]
  - Hypotension [Unknown]
  - Dizziness postural [Unknown]
